FAERS Safety Report 7705832-X (Version None)
Quarter: 2011Q3

REPORT INFORMATION
  Report Type: 
  Country: None (occurrence: None)
  Receive Date: 20110824
  Receipt Date: 20110815
  Transmission Date: 20111222
  Serious: Yes (Death)
  Sender: FDA-Public Use
  Company Number: IL-ELI_LILLY_AND_COMPANY-IL201105003406

PATIENT
  Age: 67 Year
  Sex: Female

DRUGS (8)
  1. LEVOTHYROXINE SODIUM [Concomitant]
     Indication: THYROID DISORDER
     Dosage: 100 UG, QD
  2. RISPERDAL [Concomitant]
  3. ZYPREXA [Suspect]
     Indication: PSYCHOTIC DISORDER
     Dosage: 10 MG, QD
     Route: 030
     Dates: start: 20110418, end: 20110420
  4. BONDORMIN [Concomitant]
     Indication: INSOMNIA
  5. GASTRO [Concomitant]
     Indication: HYPERCHLORHYDRIA
     Dosage: 20 MG, QD
  6. VALIUM [Concomitant]
     Dosage: 20 MG, QD
  7. NORMITEN [Concomitant]
     Indication: BLOOD PRESSURE INCREASED
     Dosage: 100 MG, QD
  8. HALDOL [Concomitant]
     Dosage: 5 MG, QD

REACTIONS (1)
  - SUDDEN DEATH [None]
